FAERS Safety Report 9632578 (Version 1)
Quarter: 2013Q4

REPORT INFORMATION
  Report Type: Spontaneous
  Country: DE (occurrence: DE)
  Receive Date: 20131018
  Receipt Date: 20131018
  Transmission Date: 20140711
  Serious: Yes (Other)
  Sender: FDA-Public Use
  Company Number: DE-ELI_LILLY_AND_COMPANY-DE201310004280

PATIENT
  Sex: Female

DRUGS (1)
  1. EFIENT [Suspect]

REACTIONS (2)
  - Diverticulum intestinal haemorrhagic [Unknown]
  - Neoplasm malignant [Unknown]
